FAERS Safety Report 22137985 (Version 1)
Quarter: 2023Q1

REPORT INFORMATION
  Report Type: Spontaneous
  Country: US (occurrence: US)
  Receive Date: 20230325
  Receipt Date: 20230325
  Transmission Date: 20230417
  Serious: Yes (Other)
  Sender: FDA-Public Use
  Company Number: US-Accord-304794

PATIENT
  Sex: Female

DRUGS (7)
  1. MYCOPHENOLATE MOFETIL [Suspect]
     Active Substance: MYCOPHENOLATE MOFETIL
     Indication: Graft versus host disease
  2. TACROLIMUS [Suspect]
     Active Substance: TACROLIMUS
     Indication: Graft versus host disease
  3. FLUDARABINE [Concomitant]
     Active Substance: FLUDARABINE PHOSPHATE
     Dosage: DAYS -7 TO -3
  4. MELPHALAN [Concomitant]
     Active Substance: MELPHALAN
     Dosage: DAY -2
  5. THIOTEPA [Concomitant]
     Active Substance: THIOTEPA
     Dosage: DAY -3
  6. ALEMTUZUMAB [Concomitant]
     Active Substance: ALEMTUZUMAB
     Dosage: DAYS -14 TO -10
  7. METHYLPREDNISOLONE [Concomitant]
     Active Substance: METHYLPREDNISOLONE
     Dosage: PULSE DOSE OF MPDN

REACTIONS (9)
  - Mucosal inflammation [Unknown]
  - Thrombocytopenia [Unknown]
  - Hypogammaglobulinaemia [Unknown]
  - Engraftment syndrome [Unknown]
  - Gastroenteritis [Unknown]
  - Hypervolaemia [Unknown]
  - Hypertension [Unknown]
  - Hypertransaminasaemia [Unknown]
  - Cytomegalovirus infection reactivation [Unknown]
